FAERS Safety Report 9009359 (Version 3)
Quarter: 2013Q1

REPORT INFORMATION
  Report Type: Spontaneous
  Country: FR (occurrence: FR)
  Receive Date: 20130111
  Receipt Date: 20130227
  Transmission Date: 20140127
  Serious: Yes (Hospitalization)
  Sender: FDA-Public Use
  Company Number: FR-BRISTOL-MYERS SQUIBB COMPANY-17267162

PATIENT
  Age: 64 Year
  Sex: Male

DRUGS (1)
  1. ABILIFY [Suspect]
     Dosage: 14 DAYS
     Route: 048
     Dates: start: 20121120, end: 20121203

REACTIONS (3)
  - Confusional state [Recovered/Resolved]
  - Hallucination, visual [Recovered/Resolved]
  - Drug dispensing error [Unknown]
